FAERS Safety Report 14723830 (Version 3)
Quarter: 2020Q1

REPORT INFORMATION
  Report Type: Report from Study
  Country: BE (occurrence: BE)
  Receive Date: 20180405
  Receipt Date: 20200122
  Transmission Date: 20200409
  Serious: Yes (Hospitalization, Other)
  Sender: FDA-Public Use
  Company Number: BE-MYLANLABS-2018M1021600

PATIENT
  Age: 78 Year
  Sex: Female
  Weight: 81 kg

DRUGS (27)
  1. CARBOPLATIN. [Suspect]
     Active Substance: CARBOPLATIN
     Dosage: 2 AUC WEEKLY
     Route: 042
     Dates: start: 20160210
  2. XYZALL [Concomitant]
     Active Substance: LEVOCETIRIZINE DIHYDROCHLORIDE
     Indication: INFUSION RELATED REACTION
     Dosage: UNK
     Route: 065
     Dates: start: 20151217
  3. ZANTAC [Concomitant]
     Active Substance: RANITIDINE HYDROCHLORIDE
     Indication: INFUSION RELATED REACTION
     Dosage: UNK
     Route: 065
     Dates: start: 20151217
  4. DEXAMETHASON                       /00016001/ [Concomitant]
     Active Substance: DEXAMETHASONE
     Indication: INFUSION RELATED REACTION
     Dosage: UNK
     Route: 065
     Dates: start: 20151217
  5. CARBOPLATIN. [Suspect]
     Active Substance: CARBOPLATIN
     Indication: PRODUCT USED FOR UNKNOWN INDICATION
     Dosage: 2 AUC WEEKLY
     Route: 042
     Dates: start: 20151217
  6. CARBOPLATIN. [Suspect]
     Active Substance: CARBOPLATIN
     Dosage: 2 AUC WEEKLY
     Route: 042
     Dates: start: 20151224
  7. PACLITAXEL. [Suspect]
     Active Substance: PACLITAXEL
     Dosage: 80 MG/M2, UNK
     Route: 042
     Dates: start: 20151217
  8. CARBOPLATIN. [Suspect]
     Active Substance: CARBOPLATIN
     Dosage: 2 AUC WEEKLY
     Route: 042
     Dates: start: 20160121
  9. ZOFRAN [Concomitant]
     Active Substance: ONDANSETRON HYDROCHLORIDE
     Indication: INFUSION RELATED REACTION
     Dosage: UNK
     Route: 065
     Dates: start: 20151217
  10. CARBOPLATIN. [Suspect]
     Active Substance: CARBOPLATIN
     Dosage: 2 AUC WEEKLY
     Route: 042
     Dates: start: 20160128
  11. BEVACIZUMAB. [Suspect]
     Active Substance: BEVACIZUMAB
     Indication: OVARIAN CANCER
     Dosage: 1215 MG, Q3W
     Route: 042
     Dates: start: 20151217
  12. BEVACIZUMAB. [Suspect]
     Active Substance: BEVACIZUMAB
     Dosage: 1095 MG, Q3W
     Route: 042
     Dates: start: 20160128
  13. CLEXANE [Concomitant]
     Active Substance: ENOXAPARIN SODIUM
     Indication: PRODUCT USED FOR UNKNOWN INDICATION
     Dosage: UNK
     Route: 065
     Dates: start: 20151207, end: 20151222
  14. FORLAX [Concomitant]
     Active Substance: POLYETHYLENE GLYCOL 4000
     Indication: PRODUCT USED FOR UNKNOWN INDICATION
     Dosage: UNK
     Route: 065
     Dates: start: 201512
  15. PACLITAXEL. [Suspect]
     Active Substance: PACLITAXEL
     Dosage: 60 MG/M2, QW
     Route: 042
     Dates: start: 20160210
  16. PACLITAXEL. [Suspect]
     Active Substance: PACLITAXEL
     Dosage: 60 MG/M2, QW
     Route: 042
     Dates: start: 20160609
  17. PACLITAXEL. [Suspect]
     Active Substance: PACLITAXEL
     Dosage: UNK
     Route: 042
     Dates: start: 20160128
  18. CARBOPLATIN. [Suspect]
     Active Substance: CARBOPLATIN
     Dosage: 1.5 AUC WEEKLY
     Route: 042
     Dates: start: 20160609
  19. BEVACIZUMAB. [Suspect]
     Active Substance: BEVACIZUMAB
     Dosage: 1080 MG, Q3W
     Route: 042
     Dates: start: 20160218
  20. PACLITAXEL. [Suspect]
     Active Substance: PACLITAXEL
     Dosage: UNK
     Route: 042
     Dates: start: 20160609
  21. PACLITAXEL. [Suspect]
     Active Substance: PACLITAXEL
     Indication: OVARIAN CANCER
     Dosage: 60 MG/M2, QW
     Route: 042
     Dates: start: 20160128
  22. PACLITAXEL. [Suspect]
     Active Substance: PACLITAXEL
     Dosage: 60 MG/M2, QW
     Route: 042
     Dates: start: 20160121
  23. PACLITAXEL. [Suspect]
     Active Substance: PACLITAXEL
     Dosage: 80 MG/M2, QW
     Route: 042
     Dates: start: 20151224
  24. PACLITAXEL. [Suspect]
     Active Substance: PACLITAXEL
     Dosage: UNK
     Route: 042
     Dates: start: 20160210
  25. PACLITAXEL. [Suspect]
     Active Substance: PACLITAXEL
     Dosage: UNK
     Route: 042
     Dates: start: 20160121
  26. BEVACIZUMAB. [Suspect]
     Active Substance: BEVACIZUMAB
     Dosage: 1170 MG, Q3W
     Route: 042
     Dates: start: 20160107
  27. LASIX [Concomitant]
     Active Substance: FUROSEMIDE
     Indication: PRODUCT USED FOR UNKNOWN INDICATION
     Dosage: UNK
     Route: 065
     Dates: start: 20151231, end: 20151231

REACTIONS (7)
  - Neutropenia [Recovered/Resolved]
  - Haemorrhagic diathesis [Recovered/Resolved]
  - Peripheral sensory neuropathy [Recovered/Resolved]
  - Epistaxis [Recovered/Resolved]
  - Staphylococcal infection [Recovered/Resolved]
  - Lymphorrhoea [Recovered/Resolved]
  - Proteinuria [Unknown]

NARRATIVE: CASE EVENT DATE: 20151231
